FAERS Safety Report 6556999-0 (Version None)
Quarter: 2010Q1

REPORT INFORMATION
  Report Type: 
  Country: None (occurrence: None)
  Receive Date: 20100126
  Receipt Date: 20100113
  Transmission Date: 20100710
  Serious: Yes (Hospitalization)
  Sender: FDA-Public Use
  Company Number: 2009AC000451

PATIENT
  Age: 79 Year
  Sex: Male

DRUGS (32)
  1. DIGOXIN [Suspect]
     Dosage: 0.25 MG; QD; PO
     Route: 048
  2. METOPROLOL TARTRATE [Concomitant]
  3. GLIPIZIDE [Concomitant]
  4. COZAAR [Concomitant]
  5. ZOCOR [Concomitant]
  6. HYDRALAZINE [Concomitant]
  7. LOTREL [Concomitant]
  8. NIASPAN [Concomitant]
  9. PROTONIX [Concomitant]
  10. ASPIRIN [Concomitant]
  11. CALCITRIOL [Concomitant]
  12. LIDOCAINE [Concomitant]
  13. FUROSEMIDE [Concomitant]
  14. CRESTOR [Concomitant]
  15. ZYMAR [Concomitant]
  16. PANTOPRAZOLE [Concomitant]
  17. MINOXIDIL [Concomitant]
  18. CARVEDILOL [Concomitant]
  19. NITROGLYCERIN [Concomitant]
  20. PLAVIX [Concomitant]
  21. AMIODARONE HCL [Concomitant]
  22. ISOSORBIDE [Concomitant]
  23. SIMVASTATIN [Concomitant]
  24. CLARITHROMYCIN [Concomitant]
  25. METRONIDAZOLE [Concomitant]
  26. PROMETHAZINE [Concomitant]
  27. ZESTRIL [Concomitant]
  28. NORVASC [Concomitant]
  29. ATENOLOL [Concomitant]
  30. AMBIEN [Concomitant]
  31. ATACAND [Concomitant]
  32. FLAGYL [Concomitant]

REACTIONS (28)
  - ANAEMIA [None]
  - ANHEDONIA [None]
  - ANXIETY [None]
  - ATRIAL FIBRILLATION [None]
  - CARDIAC FAILURE CONGESTIVE [None]
  - CARDIOMYOPATHY [None]
  - COLD SWEAT [None]
  - CORONARY ARTERY DISEASE [None]
  - GASTROINTESTINAL HAEMORRHAGE [None]
  - HEART RATE IRREGULAR [None]
  - HYPERLIPIDAEMIA [None]
  - HYPERPARATHYROIDISM SECONDARY [None]
  - HYPERTENSION [None]
  - INCORRECT DOSE ADMINISTERED [None]
  - MULTIPLE INJURIES [None]
  - NASOPHARYNGITIS [None]
  - NAUSEA [None]
  - NEPHROSCLEROSIS [None]
  - NEPHROTIC SYNDROME [None]
  - PAIN [None]
  - PALPITATIONS [None]
  - RENAL FAILURE ACUTE [None]
  - RENAL FAILURE CHRONIC [None]
  - SICK SINUS SYNDROME [None]
  - SINUS DISORDER [None]
  - THERAPEUTIC AGENT TOXICITY [None]
  - VISUAL IMPAIRMENT [None]
  - VOMITING [None]
